FAERS Safety Report 7537364-6 (Version None)
Quarter: 2011Q2

REPORT INFORMATION
  Report Type: 
  Country: None (occurrence: None)
  Receive Date: 20110609
  Receipt Date: 20110607
  Transmission Date: 20111010
  Serious: Yes (Hospitalization)
  Sender: FDA-Public Use
  Company Number: US-AMGEN-USACT2011011888

PATIENT
  Age: 55 Year
  Sex: Female
  Weight: 141.95 kg

DRUGS (19)
  1. GEMZAR [Concomitant]
     Indication: BREAST CANCER METASTATIC
     Dosage: 1500 MG, UNK
     Route: 042
     Dates: start: 20101110
  2. CARBOPLATIN [Concomitant]
     Indication: BREAST CANCER METASTATIC
     Dosage: UNK
     Route: 040
     Dates: start: 20101110, end: 20110208
  3. BENICAR [Concomitant]
     Dosage: UNK
  4. LORTAB [Concomitant]
     Indication: PAIN
     Dosage: UNK
     Dates: start: 20100629
  5. LEXAPRO [Concomitant]
     Dosage: UNK
  6. TRIAMTERENE AND HYDROCHLOROTHIAZID [Concomitant]
     Dosage: UNK
  7. LISINOPRIL [Concomitant]
     Dosage: UNK
  8. COMPAZINE [Concomitant]
     Indication: NAUSEA
     Dosage: 10 MG, Q6H
     Dates: start: 20101110
  9. LORAZEPAM [Concomitant]
     Dosage: UNK
  10. ATENOLOL [Concomitant]
     Dosage: UNK
  11. NYSTATIN [Concomitant]
     Indication: FUNGAL INFECTION
     Dosage: UNK UNK, QD
     Dates: start: 20101124
  12. RITALIN [Concomitant]
     Dosage: 10 MG, BID
     Dates: start: 20100824
  13. CLEOCIN T [Concomitant]
     Dosage: UNK UNK, BID
     Dates: start: 20100706
  14. LIDEX [Concomitant]
     Indication: ERYTHEMA MULTIFORME
     Dosage: UNK UNK, BID
     Dates: start: 20101124
  15. PHENERGAN HCL [Concomitant]
     Indication: NAUSEA
     Dosage: 25 MG, UNK
     Dates: start: 20101110
  16. PANITUMUMAB [Suspect]
     Indication: BREAST CANCER METASTATIC
     Dosage: 6 MG/KG, UNK
     Route: 042
     Dates: start: 20101110
  17. ACTOS [Concomitant]
     Dosage: UNK
  18. GLIPIZIDE [Concomitant]
     Dosage: UNK
  19. FERROUS SULFATE TAB [Concomitant]
     Dosage: 325 MG, TID
     Dates: start: 20101118

REACTIONS (2)
  - FEBRILE NEUTROPENIA [None]
  - PNEUMONIA [None]
